FAERS Safety Report 16375947 (Version 2)
Quarter: 2019Q3

REPORT INFORMATION
  Report Type: Spontaneous
  Country: MX (occurrence: MX)
  Receive Date: 20190531
  Receipt Date: 20190701
  Transmission Date: 20191004
  Serious: Yes (Other)
  Sender: FDA-Public Use
  Company Number: MX-ASTRAZENECA-2019SE78907

PATIENT
  Age: 31 Year
  Sex: Female

DRUGS (4)
  1. INNOVAIR [Concomitant]
     Active Substance: BECLOMETHASONE DIPROPIONATE\FORMOTEROL
     Indication: BRONCHITIS CHRONIC
     Dosage: AEROSOL 1.724 / 0.103 MG 1 INHALATION C / 12
     Dates: start: 2018
  2. PULMICORT TBH [Suspect]
     Active Substance: BUDESONIDE
     Indication: BRONCHITIS CHRONIC
     Dosage: 100.0UG/INHAL UNKNOWN
     Route: 055
     Dates: start: 2009
  3. SYMBICORT [Suspect]
     Active Substance: BUDESONIDE\FORMOTEROL FUMARATE DIHYDRATE
     Indication: BRONCHITIS CHRONIC
     Dosage: 160 UG/INHAL, 1 INHALATION EVERY DAY
     Route: 055
     Dates: start: 2017
  4. PREDNISONA [Concomitant]
     Active Substance: PREDNISONE
     Indication: ADRENAL DISORDER
     Route: 048

REACTIONS (4)
  - Oropharyngeal pain [Not Recovered/Not Resolved]
  - Drug ineffective [Recovered/Resolved]
  - Drug interaction [Unknown]
  - Larynx irritation [Not Recovered/Not Resolved]

NARRATIVE: CASE EVENT DATE: 2009
